FAERS Safety Report 19505819 (Version 1)
Quarter: 2021Q3

REPORT INFORMATION
  Report Type: Spontaneous
  Country: US (occurrence: US)
  Receive Date: 20210707
  Receipt Date: 20210707
  Transmission Date: 20211014
  Serious: Yes (Other)
  Sender: FDA-Public Use
  Company Number: None

PATIENT
  Age: 67 Year
  Sex: Male
  Weight: 86.18 kg

DRUGS (1)
  1. SUMATRIPTAN AUTO INJECTOR [Suspect]
     Active Substance: SUMATRIPTAN

REACTIONS (3)
  - Pain [None]
  - Device defective [None]
  - Craniocerebral injury [None]

NARRATIVE: CASE EVENT DATE: 20190108
